FAERS Safety Report 10368951 (Version 1)
Quarter: 2014Q3

REPORT INFORMATION
  Report Type: Spontaneous
  Country: US (occurrence: US)
  Receive Date: 20140807
  Receipt Date: 20140807
  Transmission Date: 20150326
  Serious: No
  Sender: FDA-Public Use
  Company Number: US-BAYER-2014-118449

PATIENT
  Age: 79 Year
  Sex: Male
  Weight: 90.7 kg

DRUGS (2)
  1. ATORVASTATIN [Concomitant]
     Active Substance: ATORVASTATIN
     Dosage: 10 MG, UNK
  2. ALEVE [Suspect]
     Active Substance: NAPROXEN SODIUM
     Indication: ARTHRALGIA
     Dosage: 1 DF, OTHER
     Route: 048
     Dates: start: 201401, end: 20140806

REACTIONS (2)
  - Insomnia [Recovered/Resolved]
  - Incorrect drug administration duration [None]

NARRATIVE: CASE EVENT DATE: 201401
